FAERS Safety Report 6823353-3 (Version None)
Quarter: 2010Q3

REPORT INFORMATION
  Report Type: 
  Country: None (occurrence: None)
  Receive Date: 20100708
  Receipt Date: 20100702
  Transmission Date: 20110219
  Serious: Yes (Other)
  Sender: FDA-Public Use
  Company Number: GB-GENZYME-CLOF-1000962

PATIENT
  Sex: Male

DRUGS (8)
  1. EVOLTRA [Suspect]
     Indication: ACUTE MYELOID LEUKAEMIA
     Dosage: 34 MG, QDX5
     Route: 042
     Dates: start: 20100223, end: 20100227
  2. DAUNORUBICIN HCL [Suspect]
     Indication: ACUTE MYELOID LEUKAEMIA
     Dosage: 85 MG, UNK
     Route: 042
     Dates: start: 20100223, end: 20100227
  3. ARA-C [Suspect]
     Indication: ACUTE MYELOID LEUKAEMIA
     Dosage: 180 MG, UNK
     Route: 042
     Dates: start: 20100223, end: 20100227
  4. ARA-C [Suspect]
     Dosage: 180 MG, UNK
     Dates: start: 20100122
  5. ETOPOSIDE [Suspect]
     Indication: ACUTE MYELOID LEUKAEMIA
     Dosage: 180 MG, UNK
     Route: 042
     Dates: start: 20100223, end: 20100227
  6. ETOPOSIDE [Suspect]
     Dosage: 180 MG, UNK
     Dates: start: 20100122
  7. MYLOTARG [Suspect]
     Indication: ACUTE MYELOID LEUKAEMIA
     Dosage: 3 MG/M2, UNK
     Route: 042
     Dates: start: 20100223, end: 20100227
  8. MYLOTARG [Suspect]
     Dosage: 3 MG/M2, UNK
     Dates: start: 20100122

REACTIONS (2)
  - NEUTROPENIA [None]
  - THROMBOCYTOPENIA [None]
